FAERS Safety Report 10745498 (Version 1)
Quarter: 2015Q1

REPORT INFORMATION
  Report Type: Other
  Country: ES (occurrence: ES)
  Receive Date: 20150128
  Receipt Date: 20150128
  Transmission Date: 20150721
  Serious: Yes (Hospitalization)
  Sender: FDA-Public Use
  Company Number: ES-ASTELLAS-2015US002314

PATIENT
  Age: 60 Year
  Sex: Female

DRUGS (1)
  1. BETMIGA [Suspect]
     Active Substance: MIRABEGRON
     Indication: URINARY INCONTINENCE
     Route: 048
     Dates: start: 20141008, end: 20141105

REACTIONS (1)
  - Omental infarction [Recovered/Resolved]

NARRATIVE: CASE EVENT DATE: 20141105
